FAERS Safety Report 25622957 (Version 1)
Quarter: 2025Q3

REPORT INFORMATION
  Report Type: Spontaneous
  Country: US (occurrence: US)
  Receive Date: 20250730
  Receipt Date: 20250730
  Transmission Date: 20251021
  Serious: No
  Sender: GALPHARM INTERNATIONAL
  Company Number: US-PERRIGO-24US011704

PATIENT
  Age: 81 Year
  Sex: Male
  Weight: 72.562 kg

DRUGS (7)
  1. LORATADINE [Suspect]
     Active Substance: LORATADINE
     Indication: Nasal congestion
     Route: 048
     Dates: start: 202401, end: 20241214
  2. LORATADINE [Suspect]
     Active Substance: LORATADINE
     Indication: Pyrexia
     Route: 048
     Dates: start: 20241215
  3. LORATADINE [Suspect]
     Active Substance: LORATADINE
     Indication: Seasonal allergy
  4. COENZYME Q10 [Concomitant]
     Active Substance: DIETARY SUPPLEMENT\UBIDECARENONE
     Indication: Supplementation therapy
     Route: 065
  5. ELIQUIS [Concomitant]
     Active Substance: APIXABAN
     Indication: Anticoagulant therapy
     Route: 065
  6. FINASTERIDE [Concomitant]
     Active Substance: FINASTERIDE
     Indication: Prostatomegaly
     Route: 065
  7. MONTELUKAST [Concomitant]
     Active Substance: MONTELUKAST
     Indication: Seasonal allergy
     Route: 065

REACTIONS (2)
  - Drug effective for unapproved indication [Unknown]
  - Therapeutic product effect incomplete [Unknown]

NARRATIVE: CASE EVENT DATE: 20240101
